FAERS Safety Report 11210191 (Version 2)
Quarter: 2015Q2

REPORT INFORMATION
  Report Type: Spontaneous
  Country: US (occurrence: US)
  Receive Date: 20150622
  Receipt Date: 20150622
  Transmission Date: 20150821
  Serious: No
  Sender: FDA-Public Use
  Company Number: US-ASTELLAS-2015US011457

PATIENT
  Sex: Female

DRUGS (9)
  1. VESICARE [Suspect]
     Active Substance: SOLIFENACIN SUCCINATE
     Indication: PRODUCT USED FOR UNKNOWN INDICATION
     Route: 048
     Dates: end: 20150401
  2. STOOL SOFTENER [Concomitant]
     Active Substance: DOCUSATE CALCIUM
     Indication: CONSTIPATION
     Route: 048
  3. PAROXETINE [Concomitant]
     Active Substance: PAROXETINE\PAROXETINE HYDROCHLORIDE
     Indication: ANXIETY
     Route: 048
  4. XYZAL [Concomitant]
     Active Substance: LEVOCETIRIZINE DIHYDROCHLORIDE
     Indication: MULTIPLE ALLERGIES
     Route: 048
  5. PROMETHAZINE WITH CODEINE [Concomitant]
     Active Substance: CODEINE PHOSPHATE\PROMETHAZINE HYDROCHLORIDE
     Indication: COUGH
     Dosage: UNK UNK, UNKNOWN FREQ.
     Route: 065
     Dates: start: 20150330
  6. PROMETHAZINE [Concomitant]
     Active Substance: PROMETHAZINE\PROMETHAZINE HYDROCHLORIDE
     Indication: NAUSEA
     Route: 048
  7. SINGULAIR [Concomitant]
     Active Substance: MONTELUKAST SODIUM
     Indication: ASTHMA
     Route: 048
  8. VESICARE [Suspect]
     Active Substance: SOLIFENACIN SUCCINATE
     Indication: PRODUCT USED FOR UNKNOWN INDICATION
     Route: 048
     Dates: start: 20150402
  9. VERAMYST [Concomitant]
     Active Substance: FLUTICASONE FUROATE
     Indication: MULTIPLE ALLERGIES
     Dosage: UNK UNK, UNKNOWN FREQ.
     Route: 065

REACTIONS (1)
  - Laryngitis [Unknown]
